FAERS Safety Report 25352780 (Version 1)
Quarter: 2025Q2

REPORT INFORMATION
  Report Type: Spontaneous
  Country: US (occurrence: US)
  Receive Date: 20250523
  Receipt Date: 20250523
  Transmission Date: 20250716
  Serious: Yes (Other)
  Sender: COOPERSURGICAL
  Company Number: US-COOPERSURGICAL, INC.-2025CPS004073

PATIENT
  Age: 28 Year
  Sex: Female
  Weight: 58.05 kg

DRUGS (3)
  1. PARAGARD T 380A [Suspect]
     Active Substance: COPPER
     Route: 015
     Dates: start: 20160128
  2. NAPROXEN [Concomitant]
     Active Substance: NAPROXEN
  3. UNSPECIFIED INGREDIENT [Concomitant]
     Active Substance: UNSPECIFIED INGREDIENT

REACTIONS (23)
  - Reproductive complication associated with device [Unknown]
  - Infertility female [Unknown]
  - Kidney infection [Recovered/Resolved]
  - Injury [Not Recovered/Not Resolved]
  - Device breakage [Unknown]
  - Complication of device removal [Unknown]
  - Pelvic inflammatory disease [Unknown]
  - Urinary tract infection [Recovered/Resolved]
  - Libido decreased [Not Recovered/Not Resolved]
  - Mental disorder [Not Recovered/Not Resolved]
  - Sexual dysfunction [Not Recovered/Not Resolved]
  - Anxiety [Not Recovered/Not Resolved]
  - Depression [Not Recovered/Not Resolved]
  - Pelvic cyst [Not Recovered/Not Resolved]
  - Personal relationship issue [Unknown]
  - Psychological trauma [Not Recovered/Not Resolved]
  - Fallopian tube adhesion [Not Recovered/Not Resolved]
  - Cervix scarring [Not Recovered/Not Resolved]
  - Pain [Unknown]
  - Dyspareunia [Not Recovered/Not Resolved]
  - Dysmenorrhoea [Not Recovered/Not Resolved]
  - Heavy menstrual bleeding [Not Recovered/Not Resolved]
  - Discomfort [Not Recovered/Not Resolved]

NARRATIVE: CASE EVENT DATE: 20160125
